FAERS Safety Report 20584049 (Version 3)
Quarter: 2023Q2

REPORT INFORMATION
  Report Type: Spontaneous
  Country: CH (occurrence: CH)
  Receive Date: 20220311
  Receipt Date: 20230614
  Transmission Date: 20230721
  Serious: Yes (Hospitalization, Other)
  Sender: FDA-Public Use
  Company Number: CH-VERTEX PHARMACEUTICALS-2022-002179

PATIENT
  Age: 39 Year
  Sex: Male
  Weight: 62 kg

DRUGS (14)
  1. TRIKAFTA [Suspect]
     Active Substance: ELEXACAFTOR\IVACAFTOR\TEZACAFTOR
     Indication: Cystic fibrosis
     Dosage: 2 TABS IN AM AND 1 TAB IN PM
     Route: 048
     Dates: start: 20210425, end: 202107
  2. TRIKAFTA [Suspect]
     Active Substance: ELEXACAFTOR\IVACAFTOR\TEZACAFTOR
     Dosage: UNK
     Route: 048
     Dates: start: 2022
  3. TRIKAFTA [Suspect]
     Active Substance: ELEXACAFTOR\IVACAFTOR\TEZACAFTOR
     Dosage: ONE TABLET EVERY THREE DAYS
     Route: 048
     Dates: start: 2023
  4. CREON FORTE [Concomitant]
     Dosage: 25000 (2-3-3)
  5. AZITHROMYCIN [Concomitant]
     Active Substance: AZITHROMYCIN
     Dosage: QD
  6. SYMBICORT [Concomitant]
     Active Substance: BUDESONIDE\FORMOTEROL FUMARATE DIHYDRATE
     Dosage: UNK, BID
  7. PULMOZYME [Concomitant]
     Active Substance: DORNASE ALFA
     Dosage: 2.5 MG/ 2.5 ML
  8. COLISTIN [Concomitant]
     Active Substance: COLISTIN
     Dosage: UNK, BID
  9. CAYSTON [Concomitant]
     Active Substance: AZTREONAM
     Dosage: UNK, TID
  10. NASONEX [Concomitant]
     Active Substance: MOMETASONE FUROATE
     Dosage: QD
  11. NOVORAPID [Concomitant]
     Active Substance: INSULIN ASPART
  12. TRESIBA [Concomitant]
     Active Substance: INSULIN DEGLUDEC
     Dosage: 100 U/ML
  13. MAGNESIUM ASPARTATE HYDROCHLORIDE [Concomitant]
     Active Substance: MAGNESIUM ASPARTATE HYDROCHLORIDE
  14. ELECTROLYTES NOS [Concomitant]
     Active Substance: ELECTROLYTES NOS

REACTIONS (8)
  - Drug-induced liver injury [Not Recovered/Not Resolved]
  - Ureterolithiasis [Recovered/Resolved]
  - Nephrolithiasis [Recovered/Resolved]
  - Obstruction [Not Recovered/Not Resolved]
  - Urine oxalate decreased [Unknown]
  - Pulmonary function test decreased [Recovering/Resolving]
  - Seminal vesicular disorder [Recovered/Resolved]
  - Prostatitis [Recovered/Resolved]

NARRATIVE: CASE EVENT DATE: 20210528
